FAERS Safety Report 15479571 (Version 1)
Quarter: 2018Q4

REPORT INFORMATION
  Report Type: Report from Study
  Country: US (occurrence: US)
  Receive Date: 20181009
  Receipt Date: 20181009
  Transmission Date: 20190205
  Serious: Yes (Death, Other)
  Sender: FDA-Public Use
  Company Number: US-GILEAD-2018-0367049

PATIENT
  Age: 35 Year
  Sex: Female

DRUGS (32)
  1. AZTREONAM LYSINE [Suspect]
     Active Substance: AZTREONAM LYSINE
     Indication: CYSTIC FIBROSIS
     Dosage: 75 MG, TID FOR 28 DAYS QOM
     Route: 055
     Dates: start: 20140322
  2. TRAMADOL. [Concomitant]
     Active Substance: TRAMADOL
  3. CALCIUM [Concomitant]
     Active Substance: CALCIUM
  4. DOCUSATE [Concomitant]
     Active Substance: DOCUSATE
  5. FEROSUL [Concomitant]
  6. LANTUS [Concomitant]
     Active Substance: INSULIN GLARGINE
  7. MONTELUKAST [Concomitant]
     Active Substance: MONTELUKAST SODIUM
  8. NYSTATIN. [Concomitant]
     Active Substance: NYSTATIN
  9. PANTOPRAZOLE [Concomitant]
     Active Substance: PANTOPRAZOLE
  10. ADVAIR HFA [Concomitant]
     Active Substance: FLUTICASONE PROPIONATE\SALMETEROL XINAFOATE
  11. ANTACID                            /00018101/ [Concomitant]
     Active Substance: ALUMINUM HYDROXIDE\DIMETHICONE\MAGNESIUM HYDROXIDE
  12. CREON [Concomitant]
     Active Substance: PANCRELIPASE AMYLASE\PANCRELIPASE LIPASE\PANCRELIPASE PROTEASE
  13. NOVOLOG [Concomitant]
     Active Substance: INSULIN ASPART
  14. ONDANSETRON [Concomitant]
     Active Substance: ONDANSETRON
  15. PROAIR HFA [Concomitant]
     Active Substance: ALBUTEROL SULFATE
  16. TACROLIMUS. [Concomitant]
     Active Substance: TACROLIMUS
  17. ZORTRESS [Concomitant]
     Active Substance: EVEROLIMUS
  18. AZITHROMYCIN ANHYDROUS. [Concomitant]
     Active Substance: AZITHROMYCIN ANHYDROUS
  19. TEMAZEPAM. [Concomitant]
     Active Substance: TEMAZEPAM
  20. LEVOFLOXACIN. [Concomitant]
     Active Substance: LEVOFLOXACIN
  21. LIDOCAINE. [Concomitant]
     Active Substance: LIDOCAINE
  22. TOBI [Concomitant]
     Active Substance: TOBRAMYCIN
  23. ALPRAZOLAM. [Concomitant]
     Active Substance: ALPRAZOLAM
  24. FLUTICASONE. [Concomitant]
     Active Substance: FLUTICASONE
  25. NOXAFIL [Concomitant]
     Active Substance: POSACONAZOLE
  26. VALACICLOVIR [Concomitant]
     Active Substance: VALACYCLOVIR HYDROCHLORIDE
  27. MAGNESIUM [Concomitant]
     Active Substance: MAGNESIUM
  28. PREDNISONE. [Concomitant]
     Active Substance: PREDNISONE
  29. PRENATAL                           /00231801/ [Concomitant]
     Active Substance: VITAMINS
  30. SIMVASTATIN. [Concomitant]
     Active Substance: SIMVASTATIN
  31. VITAMIN D3 [Concomitant]
     Active Substance: CHOLECALCIFEROL
  32. SMZ-TMP [Concomitant]
     Active Substance: SULFAMETHOXAZOLE\TRIMETHOPRIM

REACTIONS (1)
  - Death [Fatal]

NARRATIVE: CASE EVENT DATE: 20180929
